FAERS Safety Report 6609228-3 (Version None)
Quarter: 2010Q1

REPORT INFORMATION
  Report Type: 
  Country: None (occurrence: None)
  Receive Date: 20100222
  Receipt Date: 20100208
  Transmission Date: 20100710
  Serious: Yes (Death, Hospitalization)
  Sender: FDA-Public Use
  Company Number: 2010AC000031

PATIENT
  Age: 63 Year
  Sex: Male

DRUGS (34)
  1. DIGOXIN [Suspect]
     Dosage: 0.125 MG; QD; PO
     Route: 048
     Dates: start: 20090301
  2. DIGOXIN [Suspect]
     Dosage: .25 MG; PO
     Route: 048
     Dates: start: 19990701, end: 19991101
  3. DIGOXIN [Suspect]
     Dosage: .125 MG; PO
     Route: 048
     Dates: start: 19991101, end: 20060101
  4. DIGOXIN [Suspect]
     Dates: end: 19990701
  5. LOVENOX [Concomitant]
  6. EFFEXOR [Concomitant]
  7. INSULIN [Concomitant]
  8. ASPIRIN [Concomitant]
  9. COLACE [Concomitant]
  10. PROTONIX [Concomitant]
  11. LASIX [Concomitant]
  12. NEURONTIN [Concomitant]
  13. LISINOPRIL [Concomitant]
  14. ALLOPURINOL [Concomitant]
  15. COREG [Concomitant]
  16. SYNTHROID [Concomitant]
  17. VICODIN [Concomitant]
  18. VANCOMYCIN [Concomitant]
  19. TOPROL-XL [Concomitant]
  20. AMARYL [Concomitant]
  21. COUMADIN [Concomitant]
  22. ZAROXOLYN [Concomitant]
  23. DEMADEX [Concomitant]
  24. ZESTRIL [Concomitant]
  25. ISORDIL [Concomitant]
  26. COLCHICINE [Concomitant]
  27. LASIX [Concomitant]
  28. COUMADIN [Concomitant]
  29. COREG [Concomitant]
  30. CELEBREX [Concomitant]
  31. METOPROLOL TARTRATE [Concomitant]
  32. AMIODARONE HCL [Concomitant]
  33. SPIRONOLACTONE [Concomitant]
  34. COREG [Concomitant]

REACTIONS (39)
  - ARTHRITIS [None]
  - BACTERIAL INFECTION [None]
  - BLOOD PRESSURE INCREASED [None]
  - CARDIAC FAILURE CONGESTIVE [None]
  - CELLULITIS [None]
  - CONGESTIVE CARDIOMYOPATHY [None]
  - CORONARY ARTERY INSUFFICIENCY [None]
  - COUGH [None]
  - DIZZINESS [None]
  - DYSGEUSIA [None]
  - DYSPNOEA [None]
  - DYSPNOEA PAROXYSMAL NOCTURNAL [None]
  - ECONOMIC PROBLEM [None]
  - EMOTIONAL DISTRESS [None]
  - ERYTHEMA [None]
  - EXERCISE TOLERANCE DECREASED [None]
  - FAECAL VOLUME INCREASED [None]
  - FATIGUE [None]
  - HYPOTHYROIDISM [None]
  - IMPLANT SITE HAEMORRHAGE [None]
  - INSOMNIA [None]
  - LETHARGY [None]
  - NEUROPATHY PERIPHERAL [None]
  - NOCTURNAL DYSPNOEA [None]
  - OEDEMA PERIPHERAL [None]
  - ORCHITIS [None]
  - PAIN [None]
  - PANCYTOPENIA [None]
  - PNEUMONIA [None]
  - PURULENT DISCHARGE [None]
  - RENAL FAILURE [None]
  - SEPSIS [None]
  - SPEECH DISORDER [None]
  - STAPHYLOCOCCAL INFECTION [None]
  - TREATMENT FAILURE [None]
  - TREATMENT NONCOMPLIANCE [None]
  - TREMOR [None]
  - VENTRICULAR TACHYCARDIA [None]
  - WEIGHT INCREASED [None]
